FAERS Safety Report 6217165-1 (Version None)
Quarter: 2009Q2

REPORT INFORMATION
  Report Type: 
  Country: None (occurrence: None)
  Receive Date: 20090606
  Receipt Date: 20090603
  Transmission Date: 20091009
  Serious: Yes (Death, Hospitalization)
  Sender: FDA-Public Use
  Company Number: PHHY2009GB21812

PATIENT
  Age: 19 Year

DRUGS (6)
  1. CYCLOSPORINE [Suspect]
     Indication: PROPHYLAXIS AGAINST GRAFT VERSUS HOST DISEASE
  2. BUSILVEX [Suspect]
     Indication: STEM CELL TRANSPLANT
     Dosage: 16 MG/KG, QD
  3. CAMPATH [Suspect]
     Indication: STEM CELL TRANSPLANT
     Dosage: 100 MG, UNK
  4. MELPHALAN [Suspect]
     Indication: STEM CELL TRANSPLANT
     Dosage: 140 MG/M2, UNK
  5. CO-TRIMOXAZOLE [Concomitant]
  6. ITRACONAZOLE [Concomitant]

REACTIONS (5)
  - ARTERIAL HAEMORRHAGE [None]
  - PNEUMONITIS [None]
  - SCEDOSPORIUM INFECTION [None]
  - SYSTEMIC MYCOSIS [None]
  - TRACHEOSTOMY MALFUNCTION [None]
